FAERS Safety Report 8182369-8 (Version None)
Quarter: 2012Q1

REPORT INFORMATION
  Report Type: 
  Country: None (occurrence: None)
  Receive Date: 20120303
  Receipt Date: 20120222
  Transmission Date: 20120608
  Serious: Yes (Other)
  Sender: FDA-Public Use
  Company Number: BR-AMGEN-BRASP2012012305

PATIENT
  Age: 57 Year
  Sex: Female
  Weight: 110 kg

DRUGS (6)
  1. NPH INSULIN [Concomitant]
     Dosage: UNK
  2. LOSARTAN POTASSIUM [Concomitant]
     Dosage: UNK
  3. ENBREL [Suspect]
     Indication: PSORIASIS
     Dosage: 50 MG, WEEKLY
     Route: 058
     Dates: start: 20110901
  4. CLONAZEPAM [Concomitant]
     Dosage: UNK
  5. METFORMIN HCL [Concomitant]
     Dosage: UNK
  6. ENBREL [Suspect]
     Indication: RHEUMATOID ARTHRITIS

REACTIONS (4)
  - RHEUMATOID ARTHRITIS [None]
  - PAIN [None]
  - PAIN IN EXTREMITY [None]
  - PSORIASIS [None]
